FAERS Safety Report 6225743-9 (Version None)
Quarter: 2009Q2

REPORT INFORMATION
  Report Type: 
  Country: None (occurrence: None)
  Receive Date: 20090612
  Receipt Date: 20090428
  Transmission Date: 20091009
  Serious: No
  Sender: FDA-Public Use
  Company Number: US-ABBOTT-09P-163-0569749-00

PATIENT
  Sex: Male
  Weight: 108.96 kg

DRUGS (5)
  1. HUMIRA [Suspect]
     Indication: PSORIASIS
     Route: 058
  2. METHOTREXATE [Concomitant]
     Indication: DRUG USE FOR UNKNOWN INDICATION
  3. CITALOPRAM [Concomitant]
     Indication: DEPRESSION
  4. RAMIPRIL [Concomitant]
     Indication: BLOOD PRESSURE
  5. NEUROXEL [Concomitant]
     Indication: PROSTATIC DISORDER

REACTIONS (2)
  - DRUG INEFFECTIVE [None]
  - PSORIASIS [None]
